FAERS Safety Report 8487684-6 (Version None)
Quarter: 2012Q3

REPORT INFORMATION
  Report Type: 
  Country: None (occurrence: None)
  Receive Date: 20120705
  Receipt Date: 20120625
  Transmission Date: 20120928
  Serious: Yes (Death, Other)
  Sender: FDA-Public Use
  Company Number: US-SANOFI-AVENTIS-2012SA038689

PATIENT
  Age: 58 Year
  Sex: Male
  Weight: 106.8 kg

DRUGS (7)
  1. LISINOPRIL [Concomitant]
  2. PLAVIX [Suspect]
     Dates: start: 20100401
  3. NOVOCAIN [Concomitant]
  4. CRESTOR [Concomitant]
     Route: 048
  5. METOPROLOL SUCCINATE [Concomitant]
     Route: 048
  6. LANTUS [Concomitant]
     Dosage: DOSE:15 UNIT(S)
  7. ASPIRIN [Concomitant]

REACTIONS (9)
  - ASPIRATION [None]
  - HAEMATEMESIS [None]
  - INTERMITTENT CLAUDICATION [None]
  - IN-STENT ARTERIAL RESTENOSIS [None]
  - DEATH [None]
  - CHEST PAIN [None]
  - DYSPNOEA [None]
  - ARTERIAL OCCLUSIVE DISEASE [None]
  - OEDEMA [None]
